FAERS Safety Report 14021398 (Version 1)
Quarter: 2017Q3

REPORT INFORMATION
  Report Type: Spontaneous
  Country: US (occurrence: US)
  Receive Date: 20170928
  Receipt Date: 20170928
  Transmission Date: 20171128
  Serious: Yes (Death, Hospitalization, Other)
  Sender: FDA-Public Use
  Company Number: US-TEVA-810348USA

PATIENT
  Age: 52 Year
  Sex: Female
  Weight: 83.08 kg

DRUGS (3)
  1. OXYCONTIN [Concomitant]
     Active Substance: OXYCODONE HYDROCHLORIDE
     Indication: CANCER PAIN
  2. FENTORA [Suspect]
     Active Substance: FENTANYL CITRATE
     Indication: CANCER PAIN
     Route: 065
     Dates: start: 20150714
  3. DURAGESIC [Concomitant]
     Active Substance: FENTANYL
     Indication: CANCER PAIN

REACTIONS (7)
  - Blood urea increased [Unknown]
  - Renal failure [Unknown]
  - Death [Fatal]
  - Cholecystitis [Unknown]
  - Blood creatinine increased [Unknown]
  - Metastasis [Unknown]
  - Cholelithiasis [Unknown]

NARRATIVE: CASE EVENT DATE: 20160613
